FAERS Safety Report 23064396 (Version 4)
Quarter: 2024Q1

REPORT INFORMATION
  Report Type: Report from Study
  Country: US (occurrence: US)
  Receive Date: 20231013
  Receipt Date: 20240125
  Transmission Date: 20240409
  Serious: No
  Sender: FDA-Public Use
  Company Number: US-002147023-NVSC2023US221109

PATIENT
  Sex: Male
  Weight: 59.87 kg

DRUGS (1)
  1. COSENTYX [Suspect]
     Active Substance: SECUKINUMAB
     Indication: Ankylosing spondylitis
     Dosage: 150 MG (ONCE A WEEK, LOADING DOSE WITH 3 LEFT)
     Route: 058
     Dates: start: 20231004

REACTIONS (2)
  - Accidental exposure to product [Unknown]
  - Device malfunction [Unknown]
